FAERS Safety Report 24065311 (Version 1)
Quarter: 2024Q3

REPORT INFORMATION
  Report Type: Spontaneous
  Country: US (occurrence: None)
  Receive Date: 20240708
  Receipt Date: 20240708
  Transmission Date: 20241016
  Serious: No
  Sender: Public
  Company Number: None

PATIENT
  Sex: 0

DRUGS (1)
  1. INSULIN GLARGINE-YFGN [Suspect]
     Active Substance: INSULIN GLARGINE-YFGN

REACTIONS (3)
  - Insurance issue [None]
  - Product dose omission issue [None]
  - Diabetic ketoacidosis [None]
